FAERS Safety Report 24297966 (Version 1)
Quarter: 2024Q3

REPORT INFORMATION
  Report Type: Spontaneous
  Country: US (occurrence: US)
  Receive Date: 20240909
  Receipt Date: 20240909
  Transmission Date: 20241016
  Serious: Yes (Hospitalization)
  Sender: CHEPLAPHARM
  Company Number: US-CHEPLA-2024011450

PATIENT
  Age: 74 Year
  Sex: Male

DRUGS (9)
  1. VALGANCICLOVIR [Suspect]
     Active Substance: VALGANCICLOVIR
     Indication: Antibiotic prophylaxis
  2. AZITHROMYCIN [Suspect]
     Active Substance: AZITHROMYCIN
     Indication: Antibiotic prophylaxis
  3. POSACONAZOLE [Suspect]
     Active Substance: POSACONAZOLE
     Indication: Antibiotic prophylaxis
  4. ATOVAQUONE [Suspect]
     Active Substance: ATOVAQUONE
     Indication: Antibiotic prophylaxis
  5. PREDNISONE [Suspect]
     Active Substance: PREDNISONE
     Indication: Immunosuppression
  6. TACROLIMUS [Suspect]
     Active Substance: TACROLIMUS
     Indication: Immunosuppression
  7. MYCOPHENOLATE MOFETIL [Suspect]
     Active Substance: MYCOPHENOLATE MOFETIL
     Indication: Immunosuppression
     Dosage: BID?DAILY DOSE: 720 MILLIGRAM
  8. APIXABAN [Concomitant]
     Active Substance: APIXABAN
     Indication: Haematoma
  9. ASPIRIN [Concomitant]
     Active Substance: ASPIRIN

REACTIONS (11)
  - Dehydration [Unknown]
  - Condition aggravated [Recovered/Resolved]
  - Epistaxis [Unknown]
  - Haemoptysis [Unknown]
  - Early satiety [Unknown]
  - Asthenia [Unknown]
  - Weight decreased [Unknown]
  - Anaemia [Unknown]
  - Thrombocytopenia [Recovered/Resolved]
  - Leukocytosis [Recovered/Resolved]
  - Pneumonia [Unknown]
